FAERS Safety Report 5324544-3 (Version None)
Quarter: 2007Q2

REPORT INFORMATION
  Report Type: 
  Country: None (occurrence: None)
  Receive Date: 20070514
  Receipt Date: 20070502
  Transmission Date: 20071010
  Serious: Yes (Death, Life-Threatening, Disabling, Other)
  Sender: FDA-Public Use
  Company Number: GB-PFIZER INC-2007035475

PATIENT
  Age: 47 Year
  Sex: Female

DRUGS (3)
  1. GENOTROPIN [Suspect]
     Indication: HYPOPITUITARISM
  2. LEVOTHYROXINE SODIUM [Concomitant]
     Route: 048
  3. LAMOTRIGINE [Concomitant]
     Route: 048

REACTIONS (2)
  - ANAPLASTIC ASTROCYTOMA [None]
  - NEOPLASM RECURRENCE [None]
